FAERS Safety Report 14016781 (Version 1)
Quarter: 2017Q3

REPORT INFORMATION
  Report Type: Spontaneous
  Country: AT (occurrence: AT)
  Receive Date: 20170927
  Receipt Date: 20170927
  Transmission Date: 20171128
  Serious: Yes (Hospitalization, Other)
  Sender: FDA-Public Use
  Company Number: AT-UCBSA-2017038414

PATIENT
  Age: 41 Year
  Sex: Male

DRUGS (3)
  1. LEVETIRACETAM. [Concomitant]
     Active Substance: LEVETIRACETAM
     Indication: EPILEPSY
     Dosage: 1000 MG, 3X/DAY (TID)
     Route: 048
  2. BRIVARACETAM [Suspect]
     Active Substance: BRIVARACETAM
     Indication: EPILEPSY
     Dosage: 100 MG, 2X/DAY (BID)
     Route: 048
     Dates: end: 201708
  3. NEUROTOP [Concomitant]
     Active Substance: CARBAMAZEPINE
     Indication: EPILEPSY
     Dosage: 600 MG, 2X/DAY (BID)
     Route: 048

REACTIONS (1)
  - Status epilepticus [Unknown]

NARRATIVE: CASE EVENT DATE: 20170817
